FAERS Safety Report 10901039 (Version 2)
Quarter: 2015Q2

REPORT INFORMATION
  Report Type: Spontaneous
  Country: JP (occurrence: JP)
  Receive Date: 20150310
  Receipt Date: 20150521
  Transmission Date: 20150821
  Serious: Yes (Other)
  Sender: FDA-Public Use
  Company Number: PHJP2015JP002586

PATIENT
  Age: 18 Year
  Sex: Male
  Weight: 62 kg

DRUGS (2)
  1. TEGRETOL [Suspect]
     Active Substance: CARBAMAZEPINE
     Indication: PAIN
     Dosage: 200 MG, TID
     Route: 048
     Dates: start: 20090612
  2. FABRAZYME [Suspect]
     Active Substance: AGALSIDASE BETA
     Indication: PRODUCT USED FOR UNKNOWN INDICATION
     Route: 041
     Dates: start: 200908

REACTIONS (1)
  - Glomerulonephritis membranous [Unknown]

NARRATIVE: CASE EVENT DATE: 20150210
